FAERS Safety Report 5256833-5 (Version None)
Quarter: 2007Q1

REPORT INFORMATION
  Report Type: 
  Country: None (occurrence: None)
  Receive Date: 20070306
  Receipt Date: 20070222
  Transmission Date: 20070707
  Serious: Yes (Hospitalization, Other)
  Sender: FDA-Public Use
  Company Number: US-PFIZER INC-2005023435

PATIENT
  Sex: Female
  Weight: 106.6 kg

DRUGS (6)
  1. NORVASC [Suspect]
     Indication: HYPERTENSION
     Route: 048
  2. TOPROL-XL [Suspect]
     Indication: HYPERTENSION
     Dates: start: 20061217
  3. HERBALIFE PRODUCTS [Concomitant]
  4. VITAMINS [Concomitant]
  5. ZICAM, UNSPECIFIED [Concomitant]
  6. DIURETICS [Concomitant]
     Dosage: FREQ:UNKNOWN
     Route: 065

REACTIONS (26)
  - ALOPECIA [None]
  - AMNESIA [None]
  - ASTHENIA [None]
  - BLOOD PRESSURE INADEQUATELY CONTROLLED [None]
  - BREAST CANCER STAGE I [None]
  - CATHETERISATION CARDIAC ABNORMAL [None]
  - COLON CANCER [None]
  - CONFUSIONAL STATE [None]
  - DIZZINESS [None]
  - DRY EYE [None]
  - ENDOMETRIOSIS [None]
  - FACIAL PAIN [None]
  - FATIGUE [None]
  - GASTROINTESTINAL DISORDER [None]
  - GINGIVAL PAIN [None]
  - INFLAMMATION [None]
  - KELOID SCAR [None]
  - LOCAL SWELLING [None]
  - LYMPHOMA [None]
  - OCULAR HYPERAEMIA [None]
  - OEDEMA PERIPHERAL [None]
  - PAIN IN EXTREMITY [None]
  - SINUSITIS [None]
  - TINNITUS [None]
  - UTERINE CANCER [None]
  - VISION BLURRED [None]
